FAERS Safety Report 21148150 (Version 1)
Quarter: 2022Q3

REPORT INFORMATION
  Report Type: Spontaneous
  Country: CN (occurrence: None)
  Receive Date: 20220729
  Receipt Date: 20220729
  Transmission Date: 20221027
  Serious: Yes (Life-Threatening, Other)
  Sender: FDA-Public Use
  Company Number: 2022A268512

PATIENT
  Age: 75 Year
  Sex: Male
  Weight: 67 kg

DRUGS (1)
  1. OSIMERTINIB MESYLATE [Suspect]
     Active Substance: OSIMERTINIB MESYLATE
     Indication: Lung neoplasm malignant
     Route: 048
     Dates: start: 20220101, end: 20220214

REACTIONS (3)
  - Thrombocytopenia [Recovering/Resolving]
  - Muscular weakness [Recovering/Resolving]
  - Gait disturbance [Unknown]

NARRATIVE: CASE EVENT DATE: 20220201
